FAERS Safety Report 4928937-5 (Version None)
Quarter: 2006Q1

REPORT INFORMATION
  Report Type: 
  Country: None (occurrence: None)
  Receive Date: 20060301
  Receipt Date: 20060223
  Transmission Date: 20060701
  Serious: Yes (Death)
  Sender: FDA-Public Use
  Company Number: GB-JNJFOC-20060205414

PATIENT
  Sex: Male

DRUGS (3)
  1. REMICADE [Suspect]
     Route: 042
  2. ANTIBIOTICS [Concomitant]
     Route: 065
  3. STEROIDS [Concomitant]
     Route: 065

REACTIONS (1)
  - DEATH [None]
